FAERS Safety Report 7354613-8 (Version None)
Quarter: 2011Q1

REPORT INFORMATION
  Report Type: 
  Country: None (occurrence: None)
  Receive Date: 20110316
  Receipt Date: 20110314
  Transmission Date: 20110831
  Serious: No
  Sender: FDA-Public Use
  Company Number: US-PFIZER INC-2011055807

PATIENT
  Sex: Male

DRUGS (1)
  1. LYRICA [Suspect]
     Dosage: 75 MG, 1X/DAY

REACTIONS (4)
  - ERECTILE DYSFUNCTION [None]
  - OEDEMA PERIPHERAL [None]
  - DIZZINESS [None]
  - NEUROPATHY PERIPHERAL [None]
